FAERS Safety Report 25548867 (Version 1)
Quarter: 2025Q3

REPORT INFORMATION
  Report Type: Spontaneous
  Country: US (occurrence: None)
  Receive Date: 20250713
  Receipt Date: 20250713
  Transmission Date: 20251020
  Serious: Yes (unspecified)
  Sender: FDA-CTU
  Company Number: None

PATIENT

DRUGS (2)
  1. MINOXIDIL [Suspect]
     Active Substance: MINOXIDIL
     Indication: Androgenetic alopecia
     Dates: start: 20250616, end: 20250706
  2. MINOXIDIL [Suspect]
     Active Substance: MINOXIDIL

REACTIONS (3)
  - Flushing [None]
  - Rosacea [None]
  - Alcohol intolerance [None]

NARRATIVE: CASE EVENT DATE: 20250701
